FAERS Safety Report 21774578 (Version 3)
Quarter: 2023Q1

REPORT INFORMATION
  Report Type: Spontaneous
  Country: US (occurrence: US)
  Receive Date: 20221224
  Receipt Date: 20230203
  Transmission Date: 20230417
  Serious: No
  Sender: FDA-Public Use
  Company Number: US-UNITED THERAPEUTICS-UNT-2022-031324

PATIENT
  Age: 69 Year
  Sex: Female
  Weight: 97.506 kg

DRUGS (4)
  1. REMODULIN [Suspect]
     Active Substance: TREPROSTINIL
     Indication: Pulmonary arterial hypertension
     Dosage: 0.0025 ?G/KG, CONTINUING (SELF FILL CASSETTE WITH 1.7 ML, RATE OF 17 MCL PER HOUR)
     Route: 058
     Dates: start: 202212
  2. REMODULIN [Suspect]
     Active Substance: TREPROSTINIL
     Dosage: UNK (DOSE INCREASED WITH NEW SITE CHANGE), CONTINUING
     Route: 058
     Dates: start: 202301
  3. REMODULIN [Suspect]
     Active Substance: TREPROSTINIL
     Dosage: 0.012 ?G/KG (SELF-FILL CASSETTE WITH 3 ML; RATE OF 79 MCL PER HOUR), CONTINUING
     Route: 058
     Dates: start: 20230111
  4. REVATIO [Concomitant]
     Active Substance: SILDENAFIL CITRATE
     Indication: Product used for unknown indication
     Dosage: 10 MG, TID
     Route: 065

REACTIONS (7)
  - Device failure [Not Recovered/Not Resolved]
  - Infusion site pain [Unknown]
  - Headache [Unknown]
  - Infusion site erythema [Unknown]
  - Infusion site streaking [Unknown]
  - Infusion site swelling [Unknown]
  - Infusion site warmth [Unknown]

NARRATIVE: CASE EVENT DATE: 20221201
